FAERS Safety Report 4518402-1 (Version None)
Quarter: 2004Q4

REPORT INFORMATION
  Report Type: 
  Country: None (occurrence: None)
  Receive Date: 20041202
  Receipt Date: 20041121
  Transmission Date: 20050328
  Serious: Yes (Hospitalization)
  Sender: FDA-Public Use
  Company Number: HQWYE624222NOV04

PATIENT
  Age: 25 Year
  Sex: Male

DRUGS (3)
  1. RAPAMUNE [Suspect]
     Indication: PROPHYLAXIS AGAINST TRANSPLANT REJECTION
     Dosage: 2 MG 1 X PER 1 DAY
     Route: 048
     Dates: start: 20041022, end: 20041123
  2. CYCLOSPORINE [Suspect]
     Indication: PROPHYLAXIS AGAINST TRANSPLANT REJECTION
     Dates: start: 20021201
  3. PREDNISONE [Suspect]
     Indication: PROPHYLAXIS AGAINST TRANSPLANT REJECTION
     Dates: start: 20021201

REACTIONS (6)
  - BLOOD CREATININE INCREASED [None]
  - CARDIAC ENZYMES INCREASED [None]
  - DEPRESSED LEVEL OF CONSCIOUSNESS [None]
  - ENDOCARDITIS [None]
  - PYREXIA [None]
  - STATUS EPILEPTICUS [None]
